FAERS Safety Report 9284266 (Version 1)
Quarter: 2013Q2

REPORT INFORMATION
  Report Type: Spontaneous
  Country: US (occurrence: US)
  Receive Date: 20130510
  Receipt Date: 20130510
  Transmission Date: 20140414
  Serious: No
  Sender: FDA-Public Use
  Company Number: US-009507513-1305USA002412

PATIENT
  Age: 48 Year
  Sex: Female

DRUGS (2)
  1. DULERA [Suspect]
     Dosage: 2 PUFFS/TWICE A DAY
     Route: 055
     Dates: start: 20130315
  2. DYMISTA [Concomitant]
     Dosage: UNK

REACTIONS (1)
  - Laryngitis [Not Recovered/Not Resolved]
